FAERS Safety Report 8783456 (Version 1)
Quarter: 2012Q4

REPORT INFORMATION
  Report Type: 
  Country: NL (occurrence: NL)
  Receive Date: 20120913
  Receipt Date: 20120913
  Transmission Date: 20130627
  Serious: Yes (Other)
  Sender: FDA-Public Use
  Company Number: NL-TEVA-354300ISR

PATIENT
  Age: 60 None
  Sex: Female

DRUGS (6)
  1. COPAXONE [Suspect]
     Dosage: 20 Milligram Daily;
     Route: 058
     Dates: start: 20030225
  2. RISPERDAL [Suspect]
     Indication: PSYCHOTIC DISORDER
     Dosage: 2 Milligram Daily;
     Route: 048
     Dates: start: 20111007
  3. BACLOFEN 10 MG [Concomitant]
     Dosage: 40 Milligram Daily;
  4. NITROFURANTOIN [Concomitant]
  5. SIMVASTATINE [Concomitant]
     Indication: DIABETES MELLITUS
     Dosage: 40 Milligram Daily;
     Route: 048
     Dates: start: 20120807
  6. TOVIAZ [Concomitant]

REACTIONS (3)
  - Type 2 diabetes mellitus [Not Recovered/Not Resolved]
  - Psychotic disorder [Unknown]
  - Delusion [Unknown]
